FAERS Safety Report 24308097 (Version 1)
Quarter: 2024Q3

REPORT INFORMATION
  Report Type: Other
  Country: US (occurrence: US)
  Receive Date: 20240911
  Receipt Date: 20240911
  Transmission Date: 20241016
  Serious: No
  Sender: SIGMA TAU
  Company Number: US-LEADIANT BIOSCIENCES, INC.-2023STPI000463

PATIENT
  Sex: Male

DRUGS (1)
  1. MATULANE [Suspect]
     Active Substance: PROCARBAZINE HYDROCHLORIDE
     Indication: Non-Hodgkin^s lymphoma
     Dosage: 50 MILLIGRAMS, 4 CAPSULES (200 MG TOTAL) DAILY FOR 7 DAYS
     Route: 048
     Dates: start: 20231027

REACTIONS (4)
  - Confusional state [Unknown]
  - Amnesia [Unknown]
  - Ataxia [Unknown]
  - Lethargy [Unknown]
